FAERS Safety Report 7964407-8 (Version None)
Quarter: 2011Q4

REPORT INFORMATION
  Report Type: 
  Country: None (occurrence: None)
  Receive Date: 20111206
  Receipt Date: 20111123
  Transmission Date: 20120403
  Serious: Yes (Hospitalization, Other)
  Sender: FDA-Public Use
  Company Number: 2011MA016798

PATIENT
  Age: 41 Year
  Sex: Female

DRUGS (1)
  1. METHYLPHENIDATE HYDROCHLORIDE [Suspect]
     Dosage: IV
     Route: 042

REACTIONS (6)
  - PYREXIA [None]
  - INJECTION SITE WARMTH [None]
  - TOXICITY TO VARIOUS AGENTS [None]
  - DRUG ABUSE [None]
  - ISCHAEMIA [None]
  - INJECTION SITE ABSCESS [None]
